FAERS Safety Report 7515105-6 (Version None)
Quarter: 2011Q2

REPORT INFORMATION
  Report Type: 
  Country: None (occurrence: None)
  Receive Date: 20110601
  Receipt Date: 20110526
  Transmission Date: 20111010
  Serious: Yes (Hospitalization)
  Sender: FDA-Public Use
  Company Number: CH-SANOFI-AVENTIS-2011SA033743

PATIENT
  Age: 76 Year
  Sex: Female
  Weight: 88 kg

DRUGS (16)
  1. BONIVA [Concomitant]
     Route: 048
  2. CALCIUM SANDOZ FORTE D [Concomitant]
     Route: 048
  3. TEGRETOL [Suspect]
     Route: 048
     Dates: start: 19930101, end: 20110419
  4. POTASSIUM CHLORIDE [Concomitant]
     Route: 048
  5. LASIX [Suspect]
     Indication: ESSENTIAL HYPERTENSION
     Route: 048
     Dates: end: 20110419
  6. ACETAMINOPHEN [Suspect]
     Route: 048
     Dates: end: 20110419
  7. ASPIRIN [Concomitant]
     Route: 048
  8. BROMOCRIPTINE MESYLATE [Concomitant]
     Route: 048
     Dates: start: 19930101
  9. ALLOPURINOL [Suspect]
     Indication: GOUT
     Route: 048
     Dates: start: 20110407, end: 20110420
  10. ATORVASTATIN CALCIUM [Suspect]
     Route: 048
     Dates: end: 20110419
  11. IMPORTAL [Concomitant]
     Route: 048
  12. OMEPRAZOLE [Suspect]
     Route: 048
     Dates: end: 20110419
  13. TRAMADOL HCL [Suspect]
     Route: 048
     Dates: end: 20110419
  14. ATACAND [Suspect]
     Indication: ESSENTIAL HYPERTENSION
     Route: 048
     Dates: end: 20110419
  15. NEBIVOLOL HCL [Concomitant]
     Route: 048
  16. FERRUM H [Concomitant]
     Route: 048

REACTIONS (4)
  - HEPATOCELLULAR INJURY [None]
  - HYPERBILIRUBINAEMIA [None]
  - RENAL FAILURE ACUTE [None]
  - INTERNATIONAL NORMALISED RATIO INCREASED [None]
